FAERS Safety Report 5471885-5 (Version None)
Quarter: 2007Q3

REPORT INFORMATION
  Report Type: 
  Country: None (occurrence: None)
  Receive Date: 20070928
  Receipt Date: 20070724
  Transmission Date: 20080115
  Serious: No
  Sender: FDA-Public Use
  Company Number: US-BRISTOL-MYERS SQUIBB COMPANY-13855747

PATIENT
  Age: 20 Year
  Sex: Female
  Weight: 49 kg

DRUGS (3)
  1. DEFINITY [Suspect]
     Route: 042
  2. INDERAL [Concomitant]
  3. MELOXICAM [Concomitant]

REACTIONS (3)
  - DIZZINESS [None]
  - DYSPNOEA [None]
  - FLUSHING [None]
